FAERS Safety Report 19892692 (Version 1)
Quarter: 2021Q3

REPORT INFORMATION
  Report Type: Spontaneous
  Country: JP (occurrence: JP)
  Receive Date: 20210929
  Receipt Date: 20210929
  Transmission Date: 20211014
  Serious: Yes (Other)
  Sender: FDA-Public Use
  Company Number: JP-SUN PHARMACEUTICAL INDUSTRIES LTD-2021RR-312610

PATIENT
  Age: 16 Year
  Sex: Male

DRUGS (7)
  1. GEMCITABINE (SOLUTION FOR INFUSION), 200MG [SUN] [Suspect]
     Active Substance: GEMCITABINE HYDROCHLORIDE
     Indication: OSTEOSARCOMA
     Dosage: UNK
     Route: 065
  2. METHOTREXATE. [Suspect]
     Active Substance: METHOTREXATE
     Indication: OSTEOSARCOMA
     Dosage: UNK
     Route: 065
  3. IFOSFAMIDE. [Suspect]
     Active Substance: IFOSFAMIDE
     Indication: OSTEOSARCOMA
     Dosage: UNK
     Route: 065
  4. DOCETAXEL. [Suspect]
     Active Substance: DOCETAXEL
     Indication: OSTEOSARCOMA
     Dosage: UNK
     Route: 065
  5. DOXORUBICIN [Suspect]
     Active Substance: DOXORUBICIN
     Indication: OSTEOSARCOMA
     Dosage: UNK
     Route: 065
  6. CISPLATIN. [Suspect]
     Active Substance: CISPLATIN
     Indication: OSTEOSARCOMA
     Dosage: UNK
     Route: 065
  7. PAZOPANIB [Suspect]
     Active Substance: PAZOPANIB
     Indication: OSTEOSARCOMA RECURRENT
     Dosage: UNK

REACTIONS (5)
  - Disease progression [Unknown]
  - Pneumothorax [Unknown]
  - Condition aggravated [Unknown]
  - Off label use [Unknown]
  - Myositis [Unknown]
